FAERS Safety Report 6828688-6 (Version None)
Quarter: 2010Q3

REPORT INFORMATION
  Report Type: 
  Country: None (occurrence: None)
  Receive Date: 20100709
  Receipt Date: 20070220
  Transmission Date: 20110219
  Serious: No
  Sender: FDA-Public Use
  Company Number: US-PFIZER INC-2007013785

PATIENT
  Sex: Female
  Weight: 63.5 kg

DRUGS (5)
  1. CHANTIX [Suspect]
     Indication: SMOKING CESSATION THERAPY
     Dates: start: 20070201
  2. ZOLOFT [Concomitant]
  3. THYROID TAB [Concomitant]
  4. CALCIUM CARBONATE [Concomitant]
  5. VITAMINS [Concomitant]

REACTIONS (1)
  - NAUSEA [None]
